FAERS Safety Report 5692030-7 (Version None)
Quarter: 2008Q2

REPORT INFORMATION
  Report Type: 
  Country: None (occurrence: None)
  Receive Date: 20080402
  Receipt Date: 20080324
  Transmission Date: 20081010
  Serious: Yes (Other)
  Sender: FDA-Public Use
  Company Number: JP-MERCK-0803USA04625

PATIENT
  Age: 85 Year
  Sex: Female

DRUGS (3)
  1. FOSAMAX [Suspect]
     Indication: OSTEOPOROSIS
     Route: 048
     Dates: start: 20080303, end: 20080307
  2. LOXONIN [Suspect]
     Indication: OSTEOPOROSIS
     Route: 048
     Dates: start: 20080223, end: 20080308
  3. ISALON [Concomitant]
     Indication: GASTRITIS PROPHYLAXIS
     Route: 048

REACTIONS (1)
  - HEPATIC FUNCTION ABNORMAL [None]
